FAERS Safety Report 4678391-6 (Version None)
Quarter: 2005Q2

REPORT INFORMATION
  Report Type: 
  Country: None (occurrence: None)
  Receive Date: 20050531
  Receipt Date: 20050531
  Transmission Date: 20051028
  Serious: No
  Sender: FDA-Public Use
  Company Number: None

PATIENT
  Age: 44 Year
  Sex: Male

DRUGS (3)
  1. VISIPAQUE 320 [Suspect]
     Indication: DIAGNOSTIC PROCEDURE
     Dosage: 320 ONE TIME INTRAVENOU
     Route: 042
     Dates: start: 20050315, end: 20050315
  2. CATAPRES [Concomitant]
  3. PERCOCET [Concomitant]

REACTIONS (4)
  - CONTRAST MEDIA REACTION [None]
  - PRURITUS [None]
  - SNEEZING [None]
  - URTICARIA [None]
